FAERS Safety Report 4498049-6 (Version None)
Quarter: 2004Q4

REPORT INFORMATION
  Report Type: 
  Country: None (occurrence: None)
  Receive Date: 20041109
  Receipt Date: 20041109
  Transmission Date: 20050328
  Serious: Yes (Hospitalization)
  Sender: FDA-Public Use
  Company Number: None

PATIENT
  Age: 40 Year
  Sex: Female
  Weight: 129.5 kg

DRUGS (17)
  1. CYTOXAN [Suspect]
     Indication: CHEMOTHERAPY
     Dosage: 4250    QD   INTRAVENOUS
     Route: 042
     Dates: start: 20040816, end: 20040817
  2. BUSULFAN [Suspect]
     Dosage: 72MG  QD  INTRAVENOUS
     Route: 042
     Dates: start: 20040812, end: 20040819
  3. URSODIAL [Concomitant]
  4. FK506 [Concomitant]
  5. SIROLIMUS [Concomitant]
  6. SOLU-MEDROL [Concomitant]
  7. METHOSALEM [Concomitant]
  8. FLAGYL [Concomitant]
  9. VANCOMYCIN [Concomitant]
  10. MYCELEX TROCHES [Concomitant]
  11. CASPOFUNGIN [Concomitant]
  12. CEFEPIME [Concomitant]
  13. ACYLOVIR [Concomitant]
  14. ATIVAN [Concomitant]
  15. ESCITALOPRAM [Concomitant]
  16. PANTOPRAZOLE [Concomitant]
  17. DILAUDID [Concomitant]

REACTIONS (8)
  - ANOREXIA [None]
  - BLADDER SPASM [None]
  - BLOOD BILIRUBIN ABNORMAL [None]
  - DRUG TOXICITY [None]
  - GASTROINTESTINAL HAEMORRHAGE [None]
  - GRAFT VERSUS HOST DISEASE [None]
  - HAEMATURIA [None]
  - OEDEMA [None]
